FAERS Safety Report 7535515-0 (Version None)
Quarter: 2011Q2

REPORT INFORMATION
  Report Type: 
  Country: None (occurrence: None)
  Receive Date: 20110609
  Receipt Date: 20110103
  Transmission Date: 20111010
  Serious: Yes (Hospitalization, Other)
  Sender: FDA-Public Use
  Company Number: US-BAYER-201023519NA

PATIENT
  Age: 24 Year
  Sex: Female
  Weight: 61.224 kg

DRUGS (8)
  1. PRILOSEC [Concomitant]
  2. YASMIN [Suspect]
     Dosage: UNK
     Dates: start: 20081025, end: 20091201
  3. TRAMADOL HCL [Concomitant]
     Indication: MIGRAINE
     Dosage: UNK
     Dates: start: 20060101
  4. NSAID'S [Concomitant]
  5. YASMIN [Suspect]
     Dosage: UNK UNK, UNK
     Route: 048
     Dates: start: 20061028, end: 20061215
  6. YASMIN [Suspect]
     Dosage: UNK
     Dates: start: 20070113, end: 20071130
  7. YASMIN [Suspect]
     Dosage: UNK
     Dates: start: 20080229, end: 20081001
  8. AVIANE-28 [Concomitant]
     Dosage: UNK
     Dates: start: 20060104

REACTIONS (3)
  - GALLBLADDER DISORDER [None]
  - BILIARY DYSKINESIA [None]
  - CHOLECYSTITIS CHRONIC [None]
